FAERS Safety Report 17392000 (Version 1)
Quarter: 2020Q1

REPORT INFORMATION
  Report Type: Spontaneous
  Country: US (occurrence: US)
  Receive Date: 20200207
  Receipt Date: 20200207
  Transmission Date: 20200409
  Serious: Yes (Life-Threatening, Hospitalization, Other)
  Sender: FDA-Public Use
  Company Number: US-ACCORD-171886

PATIENT
  Age: 60 Year
  Sex: Male

DRUGS (10)
  1. CARBOPLATIN. [Suspect]
     Active Substance: CARBOPLATIN
     Indication: T-CELL LYMPHOMA RECURRENT
  2. ETOPOSIDE. [Suspect]
     Active Substance: ETOPOSIDE
     Indication: T-CELL LYMPHOMA RECURRENT
  3. DOXORUBICIN [Suspect]
     Active Substance: DOXORUBICIN
     Indication: T-CELL LYMPHOMA
     Dosage: HYDROXYDAUNOMYCIN
  4. PREDNISOLONE. [Suspect]
     Active Substance: PREDNISOLONE
     Indication: T-CELL LYMPHOMA
  5. CYCLOPHOSPHAMIDE/CYCLOPHOSPHAMIDE MONOHYDRATE [Suspect]
     Active Substance: CYCLOPHOSPHAMIDE
     Indication: T-CELL LYMPHOMA
  6. IFOSFAMIDE. [Suspect]
     Active Substance: IFOSFAMIDE
     Indication: T-CELL LYMPHOMA RECURRENT
  7. IMMUNOGLOBULIN IV [Concomitant]
     Active Substance: HUMAN IMMUNOGLOBULIN G
     Indication: T-CELL LYMPHOMA RECURRENT
     Route: 042
  8. ONCOVIN [Suspect]
     Active Substance: VINCRISTINE SULFATE
     Indication: T-CELL LYMPHOMA
  9. RITUXIMAB. [Suspect]
     Active Substance: RITUXIMAB
     Indication: T-CELL LYMPHOMA
  10. ROMIPLOSTIM [Suspect]
     Active Substance: ROMIPLOSTIM
     Indication: EVANS SYNDROME

REACTIONS (4)
  - Sepsis [Unknown]
  - Neutropenia [Unknown]
  - Candida infection [Recovering/Resolving]
  - Cellulitis gangrenous [Recovering/Resolving]
